FAERS Safety Report 8456570-X (Version None)
Quarter: 2012Q2

REPORT INFORMATION
  Report Type: 
  Country: None (occurrence: None)
  Receive Date: 20120621
  Receipt Date: 20120619
  Transmission Date: 20120825
  Serious: Yes (Life-Threatening, Hospitalization, Other)
  Sender: FDA-Public Use
  Company Number: US-ABBOTT-12P-163-0917204-00

PATIENT
  Sex: Male
  Weight: 103.51 kg

DRUGS (4)
  1. VITAMIN [Concomitant]
     Indication: PRODUCT USED FOR UNKNOWN INDICATION
  2. ASPIRIN [Concomitant]
     Indication: PRODUCT USED FOR UNKNOWN INDICATION
  3. HUMIRA [Suspect]
     Indication: RHEUMATOID ARTHRITIS
     Route: 058
     Dates: start: 20070301, end: 20120401
  4. UNSPECIFIED BLOOD PRESSURE MEDICATION [Concomitant]
     Indication: HYPERTENSION

REACTIONS (7)
  - INCREASED TENDENCY TO BRUISE [None]
  - WHITE BLOOD CELL COUNT ABNORMAL [None]
  - ABASIA [None]
  - ASTHENIA [None]
  - B-CELL LYMPHOMA [None]
  - HAEMORRHAGIC DIATHESIS [None]
  - VITAL FUNCTIONS ABNORMAL [None]
